FAERS Safety Report 18031192 (Version 1)
Quarter: 2020Q3

REPORT INFORMATION
  Report Type: Spontaneous
  Country: FR (occurrence: FR)
  Receive Date: 20200716
  Receipt Date: 20200716
  Transmission Date: 20201103
  Serious: Yes (Other)
  Sender: FDA-Public Use
  Company Number: FR-CHEPLA-C20202075

PATIENT
  Age: 77 Year
  Sex: Female

DRUGS (5)
  1. GLICLAZIDE [Suspect]
     Active Substance: GLICLAZIDE
     Dosage: GLICLAZIDE 30 MG: 1?0?0
     Dates: end: 20191106
  2. METOPROLOL TARTRATE. [Concomitant]
     Active Substance: METOPROLOL TARTRATE
     Dosage: METOPROLOL 100 MG : 0.5?0?0.5
  3. RANITIDINE HYDROCHLORIDE. [Concomitant]
     Active Substance: RANITIDINE HYDROCHLORIDE
     Dosage: RANITIDINE 150 MG: 1?0?1
  4. ASPIRINE PROTECT 100 MG, COMPRIME GASTRO?RESISTANT [Suspect]
     Active Substance: ASPIRIN
     Dosage: ASPIRNE PROTECT 100 MG: 0?1?0
  5. XENICAL [Suspect]
     Active Substance: ORLISTAT
     Dosage: XENICAL 120 MG: 1?1?1
     Route: 048
     Dates: end: 20191106

REACTIONS (3)
  - Cell death [Recovered/Resolved]
  - Bile duct stone [Recovered/Resolved]
  - Hepatitis [Recovered/Resolved]

NARRATIVE: CASE EVENT DATE: 20191105
